FAERS Safety Report 9458146 (Version 1)
Quarter: 2013Q3

REPORT INFORMATION
  Report Type: Report from Study
  Country: US (occurrence: US)
  Receive Date: 20130814
  Receipt Date: 20130814
  Transmission Date: 20140515
  Serious: Yes (Other)
  Sender: FDA-Public Use
  Company Number: US-ROCHE-1054245

PATIENT
  Age: 57 Year
  Sex: Female
  Weight: 76.27 kg

DRUGS (10)
  1. AVASTIN [Suspect]
     Indication: NON-SMALL CELL LUNG CANCER
     Route: 042
     Dates: start: 20080901
  2. NEURONTIN [Concomitant]
     Route: 048
     Dates: start: 20120209
  3. NEURONTIN [Concomitant]
     Route: 048
     Dates: start: 20120209
  4. METFORMIN [Concomitant]
     Route: 048
     Dates: start: 200809
  5. METFORMIN [Concomitant]
     Route: 048
     Dates: start: 200809
  6. GLIMEPIRIDE [Concomitant]
     Route: 048
     Dates: start: 200809
  7. SYNTHROID [Concomitant]
     Route: 048
     Dates: start: 200810
  8. MAGNESIUM OXIDE [Concomitant]
     Route: 048
  9. CARBOPLATIN [Concomitant]
     Indication: NON-SMALL CELL LUNG CANCER
     Route: 042
     Dates: start: 2008, end: 200811
  10. PACLITAXEL [Concomitant]
     Indication: NON-SMALL CELL LUNG CANCER
     Route: 042
     Dates: start: 2008, end: 200811

REACTIONS (26)
  - Cataract [Not Recovered/Not Resolved]
  - Cataract [Not Recovered/Not Resolved]
  - Muscle spasms [Recovered/Resolved]
  - Pain in extremity [Not Recovered/Not Resolved]
  - Back pain [Not Recovered/Not Resolved]
  - Pain in extremity [Not Recovered/Not Resolved]
  - Blood magnesium decreased [Recovered/Resolved]
  - Proteinuria [Recovered/Resolved]
  - Fatigue [Not Recovered/Not Resolved]
  - Dysgeusia [Not Recovered/Not Resolved]
  - Decreased appetite [Not Recovered/Not Resolved]
  - Sinusitis [Not Recovered/Not Resolved]
  - Weight decreased [Unknown]
  - Epistaxis [Not Recovered/Not Resolved]
  - Nasal discomfort [Not Recovered/Not Resolved]
  - Vitamin D decreased [Unknown]
  - Constipation [Recovering/Resolving]
  - Haemorrhoids [Unknown]
  - Mouth ulceration [Recovered/Resolved]
  - Epistaxis [Recovered/Resolved]
  - Decreased appetite [Recovered/Resolved]
  - Weight decreased [Recovered/Resolved]
  - Visual impairment [Recovered/Resolved]
  - Mouth ulceration [Not Recovered/Not Resolved]
  - Fatigue [Unknown]
  - Cataract [Not Recovered/Not Resolved]
